FAERS Safety Report 9319264 (Version 1)
Quarter: 2013Q2

REPORT INFORMATION
  Report Type: Spontaneous
  Country: FR (occurrence: FR)
  Receive Date: 20130530
  Receipt Date: 20130530
  Transmission Date: 20140414
  Serious: Yes (Hospitalization)
  Sender: FDA-Public Use
  Company Number: FR-AMGEN-FRASP2013037648

PATIENT
  Age: 34 Year
  Sex: Female

DRUGS (16)
  1. ARANESP [Suspect]
     Indication: ANAEMIA
     Dosage: 50 MUG, QWK
     Route: 058
     Dates: start: 20130130
  2. KAYEXALATE [Concomitant]
  3. LASILIX                            /00032601/ [Concomitant]
  4. RENVELA [Concomitant]
  5. SODIUM BICARBONATE [Concomitant]
  6. CALCIDIA [Concomitant]
  7. PROGRAF [Concomitant]
  8. AMLOR [Concomitant]
  9. HYPERIUM [Concomitant]
  10. SPASFON LYOC [Concomitant]
  11. DOLIPRANE [Concomitant]
  12. UVEDOSE [Concomitant]
  13. TARDYFERON [Concomitant]
  14. MOTILIUM                           /00498201/ [Concomitant]
  15. CREON [Concomitant]
  16. INEXIUM                            /01479302/ [Concomitant]

REACTIONS (1)
  - Myositis [Recovered/Resolved]
